FAERS Safety Report 21426001 (Version 2)
Quarter: 2022Q4

REPORT INFORMATION
  Report Type: Spontaneous
  Country: IT (occurrence: IT)
  Receive Date: 20221008
  Receipt Date: 20221027
  Transmission Date: 20230112
  Serious: Yes (Life-Threatening, Hospitalization)
  Sender: FDA-Public Use
  Company Number: None

PATIENT
  Age: 57 Year
  Sex: Male
  Weight: 61 kg

DRUGS (7)
  1. FLUOROURACIL [Suspect]
     Active Substance: FLUOROURACIL
     Indication: Adenocarcinoma pancreas
     Dosage: 2400 MG / M2 REDUCED BY 16% (TOTAL DOSE: 3300 MG), UNIT DOSE : 2400 MG/M2, DURATION : 46 HOURS
     Route: 065
     Dates: start: 20220819, end: 20220821
  2. FLUOROURACIL [Suspect]
     Active Substance: FLUOROURACIL
     Dosage: 400 MG / M2 REDUCED BY 8% (TOTAL DOSE 600 MG) TO BE REPEATED AFTER 14 DAYS, UNIT DOSE : 400 MG/M2
     Route: 065
     Dates: start: 20220819, end: 20220819
  3. OXALIPLATIN [Suspect]
     Active Substance: OXALIPLATIN
     Indication: Adenocarcinoma pancreas
     Dosage: 85 MG / M2 WITH A REDUCTION OF 21% (TOTAL DOSE 110 MG) TO BE REPEATED AFTER 14 DAYS, UNIT DOSE : 85
     Route: 065
     Dates: start: 20220819, end: 20220819
  4. IRINOTECAN [Suspect]
     Active Substance: IRINOTECAN
     Indication: Adenocarcinoma pancreas
     Dosage: 180 MG / M2 REDUCED BY 31% (TOTAL DOSE: 200 MG EVERY 14 DAYS), UNIT DOSE : 180 MG/M2
     Route: 065
     Dates: start: 20220819, end: 20220819
  5. TAVOR [Concomitant]
     Indication: Anxiety
     Dosage: TAVOR 2.5 MG POSOLOGY: 1 TABLET THREE TIMES A DAY, UNIT DOSE : 2.5 MG, FREQUENCY TIME :8 HOURS
  6. DULOXETINE [Concomitant]
     Active Substance: DULOXETINE
     Indication: Depression
     Dosage: UNIT DOSE : 60 MG, FREQUENCY TIME : 1 DAY
  7. BENSERAZIDE HYDROCHLORIDE\LEVODOPA [Concomitant]
     Active Substance: BENSERAZIDE HYDROCHLORIDE\LEVODOPA
     Indication: Parkinson^s disease
     Dosage: MADOPAR 100 MG + 25 MG DOSAGE: 2 TABLETS 3 TIMES A DAY, UNIT DOSE : 250 MG, FREQUENCY TIME : 8 HOURS

REACTIONS (4)
  - Hypotension [Recovered/Resolved]
  - Dehydration [Recovered/Resolved]
  - Diarrhoea [Recovered/Resolved]
  - Asthenia [Recovering/Resolving]

NARRATIVE: CASE EVENT DATE: 20220826
